FAERS Safety Report 16677766 (Version 1)
Quarter: 2019Q3

REPORT INFORMATION
  Report Type: Spontaneous
  Country: US (occurrence: US)
  Receive Date: 20190807
  Receipt Date: 20190807
  Transmission Date: 20191004
  Serious: No
  Sender: FDA-Public Use
  Company Number: US-SLATE RUN PHARMACEUTICALS-SLTR-AE-19-40

PATIENT
  Age: 55 Year
  Sex: Male

DRUGS (2)
  1. 70436-089-55 GANCICLOVIR FOR INJECTION DRY VIAL USP 500 MG [Suspect]
     Active Substance: GANCICLOVIR SODIUM
     Indication: CYTOMEGALOVIRUS CHORIORETINITIS
     Dosage: INDUCTION DOSE.
     Route: 042
  2. 70436-089-55 GANCICLOVIR FOR INJECTION DRY VIAL USP 500 MG [Suspect]
     Active Substance: GANCICLOVIR SODIUM
     Indication: CYTOMEGALOVIRUS CHORIORETINITIS
     Dosage: MAINTENANCE DOSE.

REACTIONS (4)
  - Infusion site oedema [Recovering/Resolving]
  - Blister [Recovering/Resolving]
  - Scab [Recovering/Resolving]
  - Infusion site extravasation [Recovering/Resolving]
